FAERS Safety Report 17926920 (Version 1)
Quarter: 2020Q2

REPORT INFORMATION
  Report Type: Spontaneous
  Country: US (occurrence: US)
  Receive Date: 20200623
  Receipt Date: 20200623
  Transmission Date: 20200714
  Serious: Yes (Other)
  Sender: FDA-Public Use
  Company Number: US-SPECGX-T202001129

PATIENT
  Age: 2 Year
  Sex: Female

DRUGS (2)
  1. HYDROMORPHONE [Suspect]
     Active Substance: HYDROMORPHONE
     Indication: PRODUCT USED FOR UNKNOWN INDICATION
     Dosage: UNK
     Route: 065
  2. MORPHINE [Suspect]
     Active Substance: MORPHINE
     Indication: PRODUCT USED FOR UNKNOWN INDICATION
     Dosage: UNK
     Route: 065

REACTIONS (8)
  - Seizure [Unknown]
  - Accidental exposure to product by child [Unknown]
  - Toxic leukoencephalopathy [Unknown]
  - Brain oedema [Unknown]
  - Craniotomy [Unknown]
  - Spinal laminectomy [Unknown]
  - Overdose [Unknown]
  - Lethargy [Unknown]
